FAERS Safety Report 19602278 (Version 2)
Quarter: 2021Q3

REPORT INFORMATION
  Report Type: Report from Study
  Country: AU (occurrence: AU)
  Receive Date: 20210724
  Receipt Date: 20210730
  Transmission Date: 20211014
  Serious: Yes (Hospitalization)
  Sender: FDA-Public Use
  Company Number: AU-ROCHE-2873616

PATIENT
  Age: 53 Year
  Sex: Female

DRUGS (1)
  1. ATEZOLIZUMAB. [Suspect]
     Active Substance: ATEZOLIZUMAB
     Indication: TRIPLE NEGATIVE BREAST CANCER
     Dosage: DATE OF MOST RECENT DOSE OF ATEZOLIZUMAB: 05/JUL/2021
     Route: 041

REACTIONS (1)
  - Fracture [Recovered/Resolved with Sequelae]

NARRATIVE: CASE EVENT DATE: 20210712
